FAERS Safety Report 13838678 (Version 3)
Quarter: 2017Q4

REPORT INFORMATION
  Report Type: Report from Study
  Country: AU (occurrence: AU)
  Receive Date: 20170807
  Receipt Date: 20171010
  Transmission Date: 20180320
  Serious: Yes (Hospitalization)
  Sender: FDA-Public Use
  Company Number: PHHY2017AU106043

PATIENT
  Sex: Female

DRUGS (2)
  1. SANDOSTATIN LAR DEPOT [Suspect]
     Active Substance: OCTREOTIDE ACETATE
     Indication: CARCINOID SYNDROME
     Dosage: 30 MG, QMO  (4 WEEKS)
     Route: 030
  2. SANDOSTATIN LAR DEPOT [Suspect]
     Active Substance: OCTREOTIDE ACETATE
     Dosage: 30 MG, (3 WEEKS)
     Route: 030

REACTIONS (6)
  - Dyspnoea [Unknown]
  - Inappropriate schedule of drug administration [Unknown]
  - Chest discomfort [Unknown]
  - Anxiety [Unknown]
  - Abdominal pain upper [Unknown]
  - Drug ineffective [Unknown]
